FAERS Safety Report 8031363-6 (Version None)
Quarter: 2012Q1

REPORT INFORMATION
  Report Type: 
  Country: None (occurrence: None)
  Receive Date: 20120109
  Receipt Date: 20120103
  Transmission Date: 20120608
  Serious: Yes (Other)
  Sender: FDA-Public Use
  Company Number: CA-ROCHE-1013892

PATIENT
  Sex: Female

DRUGS (10)
  1. FLU VACCINATION [Concomitant]
  2. PREDNISONE TAB [Concomitant]
  3. PREVACID [Concomitant]
  4. XOLAIR [Suspect]
     Indication: ASTHMA
     Route: 058
     Dates: start: 20100902
  5. ZOLOFT [Concomitant]
  6. SPIRIVA [Concomitant]
  7. VENTOLIN [Concomitant]
  8. WELLBUTRIN [Concomitant]
  9. ADVAIR DISKUS 100/50 [Concomitant]
  10. OMNARIS [Concomitant]

REACTIONS (12)
  - HEADACHE [None]
  - OROPHARYNGEAL PAIN [None]
  - COUGH [None]
  - FATIGUE [None]
  - NASOPHARYNGITIS [None]
  - NASAL CONGESTION [None]
  - VOMITING [None]
  - DEPRESSION [None]
  - DIZZINESS [None]
  - INFLUENZA [None]
  - NAUSEA [None]
  - DYSPHONIA [None]
